FAERS Safety Report 20500356 (Version 1)
Quarter: 2022Q1

REPORT INFORMATION
  Report Type: Spontaneous
  Country: US (occurrence: None)
  Receive Date: 20220222
  Receipt Date: 20220222
  Transmission Date: 20220423
  Serious: No
  Sender: FDA-Public Use
  Company Number: 2022A072712

PATIENT
  Age: 28206 Day
  Sex: Female
  Weight: 65.8 kg

DRUGS (4)
  1. BUDESONIDE\FORMOTEROL [Suspect]
     Active Substance: BUDESONIDE\FORMOTEROL
     Indication: Asthma
     Dosage: 2 PUFFS, TWO TIMES A DAY
     Route: 055
     Dates: start: 20211231
  2. BUDESONIDE\FORMOTEROL [Suspect]
     Active Substance: BUDESONIDE\FORMOTEROL
     Indication: Bronchitis
     Dosage: 2 PUFFS, TWO TIMES A DAY
     Route: 055
     Dates: start: 20211231
  3. SYMBICORT [Suspect]
     Active Substance: BUDESONIDE\FORMOTEROL FUMARATE DIHYDRATE
     Indication: Asthma
     Dosage: 2 PUFFS, TWO TIMES A DAY
     Route: 055
     Dates: start: 20171204, end: 20180104
  4. SYMBICORT [Suspect]
     Active Substance: BUDESONIDE\FORMOTEROL FUMARATE DIHYDRATE
     Indication: Bronchitis
     Dosage: 2 PUFFS, TWO TIMES A DAY
     Route: 055
     Dates: start: 20171204, end: 20180104

REACTIONS (8)
  - Dyspnoea [Unknown]
  - Bronchitis [Unknown]
  - Suffocation feeling [Unknown]
  - Intentional device use issue [Unknown]
  - Incorrect dose administered by device [Unknown]
  - Product dose omission issue [Not Recovered/Not Resolved]
  - Device issue [Unknown]
  - Product label confusion [Unknown]

NARRATIVE: CASE EVENT DATE: 20211231
